FAERS Safety Report 11280099 (Version 1)
Quarter: 2015Q3

REPORT INFORMATION
  Report Type: Spontaneous
  Country: US (occurrence: None)
  Receive Date: 20150716
  Receipt Date: 20150716
  Transmission Date: 20151125
  Serious: Yes (Other)
  Sender: FDA-Public Use
  Company Number: None

PATIENT
  Age: 52 Year
  Sex: Female
  Weight: 88.45 kg

DRUGS (13)
  1. PREVACID [Concomitant]
     Active Substance: LANSOPRAZOLE
  2. METOPROLOL [Concomitant]
     Active Substance: METOPROLOL
  3. D AMPHETAMINE SALT COMBO 30 IR [Suspect]
     Active Substance: AMPHETAMINE ASPARTATE\AMPHETAMINE SULFATE\DEXTROAMPHETAMINE SACCHARATE\DEXTROAMPHETAMINE SULFATE
     Indication: BRAIN INJURY
     Dosage: 3 PILLS
     Route: 048
     Dates: start: 20150706, end: 20150715
  4. BACLOFEN. [Concomitant]
     Active Substance: BACLOFEN
  5. VITAMIN D [Concomitant]
     Active Substance: CHOLECALCIFEROL
  6. D AMPHETAMINE SALT COMBO 30 IR [Suspect]
     Active Substance: AMPHETAMINE ASPARTATE\AMPHETAMINE SULFATE\DEXTROAMPHETAMINE SACCHARATE\DEXTROAMPHETAMINE SULFATE
     Indication: ATTENTION DEFICIT/HYPERACTIVITY DISORDER
     Dosage: 3 PILLS
     Route: 048
     Dates: start: 20150706, end: 20150715
  7. AMBIEN [Concomitant]
     Active Substance: ZOLPIDEM TARTRATE
  8. ESTRADIOL. [Concomitant]
     Active Substance: ESTRADIOL
  9. XANAX [Concomitant]
     Active Substance: ALPRAZOLAM
  10. CYMBALTA [Concomitant]
     Active Substance: DULOXETINE HYDROCHLORIDE
  11. TRAMADOL. [Concomitant]
     Active Substance: TRAMADOL
  12. ADDERALL [Concomitant]
     Active Substance: AMPHETAMINE ASPARTATE\AMPHETAMINE SULFATE\DEXTROAMPHETAMINE SACCHARATE\DEXTROAMPHETAMINE SULFATE
  13. D AMPHETAMINE SALT COMBO 30 IR [Suspect]
     Active Substance: AMPHETAMINE ASPARTATE\AMPHETAMINE SULFATE\DEXTROAMPHETAMINE SACCHARATE\DEXTROAMPHETAMINE SULFATE
     Indication: NERVOUS SYSTEM DISORDER
     Dosage: 3 PILLS
     Route: 048
     Dates: start: 20150706, end: 20150715

REACTIONS (4)
  - Product physical issue [None]
  - Product colour issue [None]
  - Product quality issue [None]
  - Diarrhoea [None]

NARRATIVE: CASE EVENT DATE: 20150706
